FAERS Safety Report 21610519 (Version 2)
Quarter: 2022Q4

REPORT INFORMATION
  Report Type: Spontaneous
  Country: US (occurrence: US)
  Receive Date: 20221117
  Receipt Date: 20221213
  Transmission Date: 20230112
  Serious: Yes (Life-Threatening, Hospitalization)
  Sender: FDA-Public Use
  Company Number: US-TEVA-2022-US-2825341

PATIENT
  Age: 26 Year
  Sex: Female

DRUGS (7)
  1. EPINEPHRINE [Suspect]
     Active Substance: EPINEPHRINE
     Indication: Cardiotoxicity
     Route: 065
  2. VIMPAT [Suspect]
     Active Substance: LACOSAMIDE
     Indication: Epilepsy
     Dosage: SHE WAS FOUND WITH FOUR EMPTY BOTTLES OF BLUE, 200MG LACOSAMIDE TABLETS
     Route: 065
  3. VIMPAT [Suspect]
     Active Substance: LACOSAMIDE
     Indication: Intentional product misuse
  4. SODIUM CHLORIDE [Suspect]
     Active Substance: SODIUM CHLORIDE
     Indication: Cardiotoxicity
     Route: 050
  5. SODIUM BICARBONATE [Suspect]
     Active Substance: SODIUM BICARBONATE
     Indication: Cardiotoxicity
     Dosage: TWO AMPS OF SODIUM BICARBONATE
     Route: 050
  6. LIDOCAINE [Suspect]
     Active Substance: LIDOCAINE
     Indication: Cardiotoxicity
     Dosage: LIDOCAINE PUSHES
     Route: 050
  7. MIDAZOLAM [Concomitant]
     Active Substance: MIDAZOLAM
     Indication: Seizure
     Route: 065

REACTIONS (7)
  - Neurotoxicity [Recovering/Resolving]
  - Cardiotoxicity [Recovering/Resolving]
  - Atelectasis [Recovering/Resolving]
  - Pneumonia aspiration [Recovering/Resolving]
  - Drug ineffective [Unknown]
  - Intentional product misuse [Unknown]
  - Intentional overdose [Unknown]
